FAERS Safety Report 5776477-6 (Version None)
Quarter: 2008Q2

REPORT INFORMATION
  Report Type: 
  Country: None (occurrence: None)
  Receive Date: 20080617
  Receipt Date: 20080617
  Transmission Date: 20081010
  Serious: Yes (Other)
  Sender: FDA-Public Use
  Company Number: None

PATIENT
  Age: 38 Year
  Sex: Female
  Weight: 62.5964 kg

DRUGS (2)
  1. EFFEXOR [Suspect]
     Indication: ANXIETY
     Dosage: 150 MG 1/DAY PO
     Route: 048
     Dates: start: 20010101, end: 20080616
  2. EFFEXOR [Suspect]
     Indication: DEPRESSION
     Dosage: 150 MG 1/DAY PO
     Route: 048
     Dates: start: 20010101, end: 20080616

REACTIONS (17)
  - ABNORMAL DREAMS [None]
  - BALANCE DISORDER [None]
  - DIZZINESS [None]
  - DRUG DOSE OMISSION [None]
  - DYSARTHRIA [None]
  - FATIGUE [None]
  - HALLUCINATION [None]
  - HEADACHE [None]
  - IMPAIRED WORK ABILITY [None]
  - LOSS OF CONSCIOUSNESS [None]
  - MALAISE [None]
  - NAUSEA [None]
  - PARAESTHESIA [None]
  - RETCHING [None]
  - SOMNOLENCE [None]
  - SPEECH DISORDER [None]
  - VOMITING PROJECTILE [None]
